FAERS Safety Report 17809216 (Version 1)
Quarter: 2020Q2

REPORT INFORMATION
  Report Type: Spontaneous
  Country: FR (occurrence: FR)
  Receive Date: 20200520
  Receipt Date: 20200520
  Transmission Date: 20200714
  Serious: Yes (Other)
  Sender: FDA-Public Use
  Company Number: FR-MYLANLABS-2020M1048754

PATIENT
  Age: 76 Year
  Sex: Male
  Weight: 97 kg

DRUGS (20)
  1. CERNEVIT [Concomitant]
     Active Substance: VITAMINS
     Dosage: UNK
  2. NIMBEX [Concomitant]
     Active Substance: CISATRACURIUM BESYLATE
     Dosage: UNK
  3. SODIUM CHLORIDE B.BRAUN [Concomitant]
     Active Substance: SODIUM CHLORIDE
     Dosage: UNK
  4. ROVAMYCINE                         /00074401/ [Concomitant]
     Active Substance: SPIRAMYCIN
     Dosage: UNK
  5. BEVITINE [Concomitant]
     Active Substance: THIAMINE HYDROCHLORIDE
     Dosage: UNK
  6. C?FOTAXIME MYLAN 2 G, POUDRE POUR SOLUTION INJECTABLE (IM-IV) [Suspect]
     Active Substance: CEFOTAXIME SODIUM
     Indication: PNEUMONIA
     Dosage: 2 GRAM, Q8H
     Route: 041
     Dates: start: 20200315, end: 20200319
  7. GLUCIDION [Concomitant]
     Active Substance: GLUCOSE, LIQUID\POTASSIUM CHLORIDE\SODIUM CHLORIDE
     Dosage: UNK
  8. MIDAZOLAM MYLAN [Concomitant]
     Active Substance: MIDAZOLAM HYDROCHLORIDE
     Dosage: UNK
  9. NORADRENALINE MYLAN [Concomitant]
     Active Substance: NOREPINEPHRINE\NOREPINEPHRINE BITARTRATE
     Dosage: UNK
  10. SUFENTANIL CITRATE. [Concomitant]
     Active Substance: SUFENTANIL CITRATE
     Dosage: UNK
  11. PHOCYTAN [Concomitant]
     Active Substance: .ALPHA.-GLUCOSE-1-PHOSPHATE
     Dosage: UNK
  12. ESMERON [Concomitant]
     Active Substance: ROCURONIUM BROMIDE
     Dosage: UNK
  13. KETAMINE RENAUDIN [Concomitant]
     Active Substance: KETAMINE
     Dosage: UNK
  14. BECILAN [Concomitant]
     Active Substance: PYRIDOXINE
     Dosage: UNK
  15. NUTRYELT [Concomitant]
     Active Substance: IRON\MINERALS\POTASSIUM IOD\SODIUM FLUORIDE\SODIUM MOLYBDATE\SODIUM SELENITE\ZINC
     Dosage: UNK
  16. LOPINAVIR/RITONAVIR MYLAN [Suspect]
     Active Substance: LOPINAVIR\RITONAVIR
     Indication: CORONAVIRUS INFECTION
     Dosage: 4 DOSAGE FORM, QD
     Route: 048
     Dates: start: 20200316, end: 20200319
  17. ZINC GLUCONATE [Concomitant]
     Active Substance: ZINC GLUCONATE
     Dosage: UNK
  18. LAROSCORBINE [Concomitant]
     Active Substance: ASCORBIC ACID
     Dosage: UNK
  19. NOVORAPID [Concomitant]
     Active Substance: INSULIN ASPART
  20. SELENIUM                           /00075005/ [Concomitant]
     Dosage: UNK

REACTIONS (3)
  - Hepatocellular injury [Recovering/Resolving]
  - Off label use [Unknown]
  - Hepatic failure [Recovering/Resolving]

NARRATIVE: CASE EVENT DATE: 20200318
